FAERS Safety Report 14208612 (Version 2)
Quarter: 2017Q4

REPORT INFORMATION
  Report Type: Report from Study
  Country: US (occurrence: US)
  Receive Date: 20171121
  Receipt Date: 20171227
  Transmission Date: 20180321
  Serious: Yes (Other)
  Sender: FDA-Public Use
  Company Number: US-AMGEN-USASL2017171201

PATIENT
  Age: 82 Year
  Sex: Male
  Weight: 78.46 kg

DRUGS (1)
  1. REPATHA [Suspect]
     Active Substance: EVOLOCUMAB
     Indication: PRODUCT USED FOR UNKNOWN INDICATION
     Dosage: 140 MG, Q2WK
     Route: 058
     Dates: start: 201710, end: 20171114

REACTIONS (7)
  - Coordination abnormal [Not Recovered/Not Resolved]
  - Dizziness [Not Recovered/Not Resolved]
  - Gait disturbance [Unknown]
  - Vertigo [Recovered/Resolved]
  - Mobility decreased [Unknown]
  - Chest pain [Unknown]
  - Fall [Unknown]

NARRATIVE: CASE EVENT DATE: 2017
